FAERS Safety Report 13002592 (Version 1)
Quarter: 2016Q4

REPORT INFORMATION
  Report Type: Spontaneous
  Country: US (occurrence: US)
  Receive Date: 20161206
  Receipt Date: 20161206
  Transmission Date: 20170207
  Serious: Yes (Other)
  Sender: FDA-Public Use
  Company Number: US-JNJFOC-20161201254

PATIENT
  Sex: Male

DRUGS (2)
  1. ZYRTEC [Suspect]
     Active Substance: CETIRIZINE HYDROCHLORIDE
     Route: 065
  2. ZYRTEC [Suspect]
     Active Substance: CETIRIZINE HYDROCHLORIDE
     Indication: CONDITION AGGRAVATED
     Dosage: DAILY, FOR 4+ YEARS
     Route: 065

REACTIONS (6)
  - Burning sensation [Unknown]
  - Pruritus [Unknown]
  - Off label use [Unknown]
  - Drug dependence [Unknown]
  - Product use issue [Unknown]
  - Withdrawal syndrome [Unknown]
